FAERS Safety Report 10412180 (Version 1)
Quarter: 2014Q3

REPORT INFORMATION
  Report Type: Spontaneous
  Country: US (occurrence: None)
  Receive Date: 20140826
  Receipt Date: 20140826
  Transmission Date: 20150326
  Serious: Yes (Hospitalization)
  Sender: FDA-Public Use
  Company Number: None

PATIENT
  Age: 68 Year
  Sex: Female
  Weight: 87.1 kg

DRUGS (7)
  1. HYOSCYAMINE [Concomitant]
     Active Substance: HYOSCYAMINE
  2. ZOMETA (ZOLEDRONIC ACID (ZOMETA)) [Concomitant]
  3. FULVESTRANT [Suspect]
     Active Substance: FULVESTRANT
     Indication: BREAST CANCER METASTATIC
     Route: 030
     Dates: start: 20130903
  4. CABOZANTINIB [Suspect]
     Active Substance: CABOZANTINIB
     Indication: BREAST CANCER METASTATIC
     Route: 048
     Dates: start: 20130903
  5. LOPERAMIDE [Concomitant]
     Active Substance: LOPERAMIDE
  6. VITAMIN D3 (CHOLECALCIFEROL) [Concomitant]
  7. LOVENOX (ENOXAPARIN) [Concomitant]

REACTIONS (1)
  - Metastases to central nervous system [None]

NARRATIVE: CASE EVENT DATE: 20140821
